FAERS Safety Report 25364201 (Version 12)
Quarter: 2025Q4

REPORT INFORMATION
  Report Type: Spontaneous
  Country: CA (occurrence: CA)
  Receive Date: 20250527
  Receipt Date: 20251112
  Transmission Date: 20260118
  Serious: Yes (Hospitalization, Other)
  Sender: BAUSCH AND LOMB
  Company Number: CA-BAUSCH-BL-2025-001979

PATIENT
  Age: 53 Year
  Sex: Female

DRUGS (17)
  1. WELLBUTRIN XL [Suspect]
     Active Substance: BUPROPION HYDROCHLORIDE
     Indication: Depression
     Dosage: START DATE: BETWEEN 2018 AND 2020,
     Route: 065
  2. WELLBUTRIN XL [Suspect]
     Active Substance: BUPROPION HYDROCHLORIDE
     Route: 065
     Dates: start: 20250120, end: 20250203
  3. WELLBUTRIN XL [Suspect]
     Active Substance: BUPROPION HYDROCHLORIDE
     Dosage: DOSE REDUCED
     Route: 048
     Dates: start: 20250207
  4. WELLBUTRIN XL [Suspect]
     Active Substance: BUPROPION HYDROCHLORIDE
     Indication: Product used for unknown indication
     Route: 065
  5. ARIPIPRAZOLE [Suspect]
     Active Substance: ARIPIPRAZOLE
     Indication: Product used for unknown indication
     Route: 065
  6. TYLENOL [Concomitant]
     Active Substance: ACETAMINOPHEN
     Indication: Product used for unknown indication
     Dosage: 3 PRN OD OR BID
  7. BABY ASPIRINE [Concomitant]
     Indication: Product used for unknown indication
  8. VITAMIN C [Concomitant]
     Active Substance: ASCORBIC ACID
     Indication: Product used for unknown indication
  9. BISOPROLOL [Concomitant]
     Active Substance: BISOPROLOL
     Indication: Product used for unknown indication
  10. DICLOFENAC SODIUM [Concomitant]
     Active Substance: DICLOFENAC SODIUM
     Indication: Product used for unknown indication
  11. HYDROCHLOROTHIAZIDE [Concomitant]
     Active Substance: HYDROCHLOROTHIAZIDE
     Indication: Product used for unknown indication
  12. LEVOTHYROXINE [Concomitant]
     Active Substance: LEVOTHYROXINE
     Indication: Product used for unknown indication
  13. MAGNESIUM CITRATE [Concomitant]
     Active Substance: MAGNESIUM CITRATE
     Indication: Product used for unknown indication
  14. POTASSIUM CHLORIDE [Concomitant]
     Active Substance: POTASSIUM CHLORIDE
     Indication: Product used for unknown indication
     Dosage: 1 TAB DAILY 1500
  15. VITAMIN D3 [Concomitant]
     Active Substance: CHOLECALCIFEROL
     Indication: Product used for unknown indication
     Dosage: 2000 TO 3000 IU A DAY
  16. VALACYCLOVIR HYDROCHLORIDE [Concomitant]
     Active Substance: VALACYCLOVIR HYDROCHLORIDE
     Indication: Product used for unknown indication
     Dosage: TAKING IT DAILY, BUT IS TAKING IT SPORADICALLY
  17. MISOPROSTOL [Concomitant]
     Active Substance: MISOPROSTOL
     Indication: Product used for unknown indication
     Dosage: PRN 1 TO TWICE DAILY

REACTIONS (32)
  - Immunodeficiency common variable [Not Recovered/Not Resolved]
  - Arrhythmia [Not Recovered/Not Resolved]
  - Accidental overdose [Unknown]
  - Steatorrhoea [Not Recovered/Not Resolved]
  - Lipiduria [Not Recovered/Not Resolved]
  - Nervous system disorder [Not Recovered/Not Resolved]
  - Faeces pale [Not Recovered/Not Resolved]
  - Emotional disorder [Not Recovered/Not Resolved]
  - Renal function test abnormal [Recovering/Resolving]
  - Blood potassium abnormal [Not Recovered/Not Resolved]
  - Anion gap abnormal [Unknown]
  - Full blood count abnormal [Unknown]
  - Feeling abnormal [Not Recovered/Not Resolved]
  - Cognitive disorder [Not Recovered/Not Resolved]
  - Sensory disturbance [Not Recovered/Not Resolved]
  - Malabsorption [Not Recovered/Not Resolved]
  - Blood chloride abnormal [Not Recovered/Not Resolved]
  - Mood swings [Not Recovered/Not Resolved]
  - Condition aggravated [Not Recovered/Not Resolved]
  - Anger [Not Recovered/Not Resolved]
  - Electrocardiogram abnormal [Unknown]
  - Headache [Recovered/Resolved]
  - Vision blurred [Recovered/Resolved]
  - Nausea [Recovered/Resolved]
  - Palpitations [Unknown]
  - Irritability [Not Recovered/Not Resolved]
  - Anxiety [Not Recovered/Not Resolved]
  - Fatigue [Recovered/Resolved]
  - Dizziness [Recovered/Resolved]
  - Agitation [Not Recovered/Not Resolved]
  - Labelled drug-drug interaction issue [Unknown]
  - Product communication issue [Unknown]

NARRATIVE: CASE EVENT DATE: 20250101
